FAERS Safety Report 5813937-3 (Version None)
Quarter: 2008Q3

REPORT INFORMATION
  Report Type: 
  Country: None (occurrence: None)
  Receive Date: 20080717
  Receipt Date: 20080707
  Transmission Date: 20090109
  Serious: Yes (Life-Threatening, Hospitalization)
  Sender: FDA-Public Use
  Company Number: JP-ABBOTT-08P-087-0441200-00

PATIENT
  Sex: Male

DRUGS (10)
  1. LEUPROLIDE ACETATE [Suspect]
     Indication: PROSTATE CANCER
     Route: 058
     Dates: start: 20080130
  2. LEUPROLIDE ACETATE [Suspect]
     Route: 058
     Dates: start: 20030820, end: 20050713
  3. THEOPHYLLINE [Concomitant]
     Indication: ASTHMA
     Route: 048
     Dates: start: 20080111
  4. MAGNESIUM OXIDE [Concomitant]
     Indication: CONSTIPATION
     Route: 048
     Dates: start: 20080111
  5. AMLODIPINE BESYLATE [Concomitant]
     Indication: HYPERTENSION
     Route: 048
     Dates: start: 20080111
  6. NIZATIDINE [Concomitant]
     Indication: GASTRIC ULCER
     Route: 048
     Dates: start: 20080111
  7. HOKUNALIN TAPE [Concomitant]
     Indication: ASTHMA
     Route: 062
     Dates: start: 20080111
  8. BROMHEXINE HYDROCHLORIDE [Concomitant]
     Indication: ASTHMA
     Route: 048
     Dates: start: 20080111
  9. CEFDITOREN PIVOXIL [Concomitant]
     Indication: INFECTION PROPHYLAXIS
     Route: 048
     Dates: start: 20080130, end: 20080130
  10. CEFDITOREN PIVOXIL [Concomitant]
     Indication: CATHETERISATION CARDIAC

REACTIONS (6)
  - BRONCHITIS [None]
  - COUGH [None]
  - DYSPNOEA EXERTIONAL [None]
  - HYPOXIA [None]
  - INTERSTITIAL LUNG DISEASE [None]
  - RESPIRATORY DISORDER [None]
